FAERS Safety Report 8204818-9 (Version None)
Quarter: 2012Q1

REPORT INFORMATION
  Report Type: 
  Country: None (occurrence: None)
  Receive Date: 20120313
  Receipt Date: 20120303
  Transmission Date: 20120608
  Serious: Yes (Life-Threatening, Hospitalization, Other)
  Sender: FDA-Public Use
  Company Number: GR-JNJFOC-20110707445

PATIENT
  Age: 41 Year
  Sex: Male
  Weight: 78 kg

DRUGS (1)
  1. STELARA [Suspect]
     Indication: PSORIASIS
     Route: 058
     Dates: start: 20100901

REACTIONS (5)
  - SEPSIS [None]
  - STREPTOCOCCUS TEST POSITIVE [None]
  - DRUG EFFECT DECREASED [None]
  - MULTI-ORGAN FAILURE [None]
  - GASTROENTERITIS SALMONELLA [None]
